FAERS Safety Report 9346778 (Version 3)
Quarter: 2013Q4

REPORT INFORMATION
  Report Type: Report from Study
  Country: JP (occurrence: JP)
  Receive Date: 20130613
  Receipt Date: 20131023
  Transmission Date: 20140711
  Serious: Yes (Hospitalization)
  Sender: FDA-Public Use
  Company Number: JP-JNJFOC-20130606734

PATIENT
  Age: 48 Year
  Sex: Female
  Weight: 65 kg

DRUGS (16)
  1. SIMPONI [Suspect]
     Indication: RHEUMATOID ARTHRITIS
     Route: 058
     Dates: start: 20120702, end: 20120702
  2. SIMPONI [Suspect]
     Indication: RHEUMATOID ARTHRITIS
     Route: 058
     Dates: start: 20120604, end: 20120604
  3. SIMPONI [Suspect]
     Indication: RHEUMATOID ARTHRITIS
     Route: 058
     Dates: start: 20120507, end: 20120507
  4. SIMPONI [Suspect]
     Indication: RHEUMATOID ARTHRITIS
     Route: 058
     Dates: start: 20120802, end: 20120802
  5. SIMPONI [Suspect]
     Indication: RHEUMATOID ARTHRITIS
     Route: 058
     Dates: start: 20120907, end: 20120907
  6. SIMPONI [Suspect]
     Indication: RHEUMATOID ARTHRITIS
     Route: 058
     Dates: start: 20121004, end: 20121004
  7. HYPEN [Concomitant]
     Route: 048
  8. TAKEPRON [Concomitant]
     Indication: GASTROOESOPHAGEAL REFLUX DISEASE
     Route: 048
  9. URSO [Concomitant]
     Indication: AUTOIMMUNE HEPATITIS
     Route: 048
  10. ISCOTIN [Concomitant]
     Indication: PROPHYLAXIS
     Route: 048
  11. OLMETEC [Concomitant]
     Indication: HYPERTENSION
     Route: 048
  12. ALLEGRA [Concomitant]
     Indication: RHINITIS ALLERGIC
     Route: 048
  13. PROTECADIN [Concomitant]
     Indication: GASTROOESOPHAGEAL REFLUX DISEASE
     Route: 048
     Dates: start: 20121004, end: 20121210
  14. PREDNISONE [Concomitant]
     Indication: RHEUMATOID ARTHRITIS
     Route: 048
     Dates: start: 20121128, end: 20121218
  15. PREDNISONE [Concomitant]
     Indication: RHEUMATOID ARTHRITIS
     Route: 048
     Dates: start: 20121114, end: 20121121
  16. PREDNISONE [Concomitant]
     Indication: RHEUMATOID ARTHRITIS
     Route: 048
     Dates: start: 20121219

REACTIONS (1)
  - Rheumatoid lung [Recovering/Resolving]
